FAERS Safety Report 19400785 (Version 1)
Quarter: 2021Q2

REPORT INFORMATION
  Report Type: Spontaneous
  Country: US (occurrence: US)
  Receive Date: 20210610
  Receipt Date: 20210610
  Transmission Date: 20210717
  Serious: No
  Sender: FDA-Public Use
  Company Number: US-SA-2021SA192795

PATIENT
  Sex: Female

DRUGS (21)
  1. VESICARE [Concomitant]
     Active Substance: SOLIFENACIN SUCCINATE
  2. NABUMETONE. [Concomitant]
     Active Substance: NABUMETONE
  3. PAROXETINE HCL [Concomitant]
     Active Substance: PAROXETINE HYDROCHLORIDE
  4. VALSARTAN. [Concomitant]
     Active Substance: VALSARTAN
  5. AMANTADINE. [Concomitant]
     Active Substance: AMANTADINE HYDROCHLORIDE
  6. BASAGLAR [Concomitant]
     Active Substance: INSULIN GLARGINE
  7. VITAMIN D2 [Concomitant]
     Active Substance: ERGOCALCIFEROL
  8. NORTRIPTYLINE HCL [Concomitant]
     Active Substance: NORTRIPTYLINE HYDROCHLORIDE
  9. TECFIDERA [Concomitant]
     Active Substance: DIMETHYL FUMARATE
  10. VITAMIN B12 [Concomitant]
     Active Substance: CYANOCOBALAMIN
  11. TRILEPTAL [Concomitant]
     Active Substance: OXCARBAZEPINE
  12. XANAX [Concomitant]
     Active Substance: ALPRAZOLAM
  13. AUBAGIO [Suspect]
     Active Substance: TERIFLUNOMIDE
     Indication: MULTIPLE SCLEROSIS
     Dosage: 14 MG, QD
     Route: 048
     Dates: start: 20200409
  14. TRULICITY [Concomitant]
     Active Substance: DULAGLUTIDE
  15. PROBIOTICS NOS [Concomitant]
     Active Substance: PROBIOTICS NOS
  16. VITAMIN C [Concomitant]
     Active Substance: ASCORBIC ACID
  17. BACLOFEN. [Concomitant]
     Active Substance: BACLOFEN
  18. SYNTHROID [Concomitant]
     Active Substance: LEVOTHYROXINE SODIUM
  19. PRAVACHOL [Concomitant]
     Active Substance: PRAVASTATIN SODIUM
  20. PROVIGIL [Concomitant]
     Active Substance: MODAFINIL
  21. ZOLPIDEM TARTRATE. [Concomitant]
     Active Substance: ZOLPIDEM TARTRATE

REACTIONS (3)
  - Diarrhoea [Not Recovered/Not Resolved]
  - Influenza like illness [Not Recovered/Not Resolved]
  - Depression [Not Recovered/Not Resolved]

NARRATIVE: CASE EVENT DATE: 202102
